FAERS Safety Report 25753625 (Version 2)
Quarter: 2025Q3

REPORT INFORMATION
  Report Type: Spontaneous
  Country: US (occurrence: US)
  Receive Date: 20250903
  Receipt Date: 20250908
  Transmission Date: 20251020
  Serious: Yes (Other)
  Sender: PFIZER
  Company Number: US-PFIZER INC-202500172261

PATIENT
  Age: 80 Year
  Sex: Female

DRUGS (11)
  1. IBRANCE [Suspect]
     Active Substance: PALBOCICLIB
     Route: 048
     Dates: start: 20250723, end: 20250826
  2. ATENOLOL [Concomitant]
     Active Substance: ATENOLOL
  3. KETOCONAZOLE [Concomitant]
     Active Substance: KETOCONAZOLE
  4. BENZONATATE [Concomitant]
     Active Substance: BENZONATATE
  5. POTASSIUM [Concomitant]
     Active Substance: POTASSIUM
  6. ASPIRIN [Concomitant]
     Active Substance: ASPIRIN
  7. LORAZEPAM [Concomitant]
     Active Substance: LORAZEPAM
  8. IMODIUM [Concomitant]
     Active Substance: LOPERAMIDE HYDROCHLORIDE
  9. PYRIDIUM [Concomitant]
     Active Substance: PHENAZOPYRIDINE
  10. MAXALT [Concomitant]
     Active Substance: RIZATRIPTAN BENZOATE
  11. KISQALI [Concomitant]
     Active Substance: RIBOCICLIB SUCCINATE

REACTIONS (6)
  - Metastases to liver [Unknown]
  - Fall [Unknown]
  - Diverticulum intestinal [Unknown]
  - Liver function test increased [Unknown]
  - Dizziness [Not Recovered/Not Resolved]
  - Condition aggravated [Unknown]

NARRATIVE: CASE EVENT DATE: 20250101
